FAERS Safety Report 14102970 (Version 1)
Quarter: 2017Q4

REPORT INFORMATION
  Report Type: Spontaneous
  Country: US (occurrence: US)
  Receive Date: 20171018
  Receipt Date: 20171018
  Transmission Date: 20180321
  Serious: No
  Sender: FDA-Public Use
  Company Number: US-GLAXOSMITHKLINE-US2017GSK155541

PATIENT
  Sex: Female

DRUGS (1)
  1. BENLYSTA [Suspect]
     Active Substance: BELIMUMAB
     Dosage: 200 MG, UNK
     Route: 042

REACTIONS (3)
  - Wrong technique in device usage process [Unknown]
  - Drug dose omission [Unknown]
  - Accidental exposure to product [Unknown]
